FAERS Safety Report 16361787 (Version 1)
Quarter: 2019Q2

REPORT INFORMATION
  Report Type: Spontaneous
  Country: US (occurrence: US)
  Receive Date: 20190419
  Receipt Date: 20190419
  Transmission Date: 20190711
  Serious: No
  Sender: FDA-Public Use
  Company Number: None

PATIENT
  Age: 71 Year
  Sex: Male

DRUGS (4)
  1. PROAIR HFA [Concomitant]
     Active Substance: ALBUTEROL SULFATE
  2. NUCALA [Suspect]
     Active Substance: MEPOLIZUMAB
     Dates: start: 201710
  3. IPRATROPIUM [Concomitant]
     Active Substance: IPRATROPIUM
  4. PREDNISONE. [Concomitant]
     Active Substance: PREDNISONE

REACTIONS (2)
  - Economic problem [None]
  - Product dose omission [None]

NARRATIVE: CASE EVENT DATE: 20190314
